FAERS Safety Report 19677694 (Version 9)
Quarter: 2022Q3

REPORT INFORMATION
  Report Type: Report from Study
  Country: US (occurrence: US)
  Receive Date: 20210809
  Receipt Date: 20220812
  Transmission Date: 20221026
  Serious: Yes (Other)
  Sender: FDA-Public Use
  Company Number: US-GLAXOSMITHKLINE-US2021GSK167933

PATIENT

DRUGS (10)
  1. BELIMUMAB [Suspect]
     Active Substance: BELIMUMAB
     Indication: Systemic lupus erythematosus
     Dosage: 200 MG, WE
     Route: 058
     Dates: start: 20200723, end: 20201126
  2. BELIMUMAB [Suspect]
     Active Substance: BELIMUMAB
     Dosage: 200 MG
     Route: 058
     Dates: start: 20210126, end: 20210802
  3. LAMICTAL [Suspect]
     Active Substance: LAMOTRIGINE
     Indication: Generalised anxiety disorder
     Dosage: 150 MG, BID
  4. FOLATE SODIUM [Suspect]
     Active Substance: FOLATE SODIUM
     Indication: Product used for unknown indication
     Dosage: UNK
  5. FOLATE SODIUM [Suspect]
     Active Substance: FOLATE SODIUM
     Dosage: UNK
     Dates: start: 202012
  6. PLAQUENIL [Suspect]
     Active Substance: HYDROXYCHLOROQUINE SULFATE
     Indication: Prophylaxis
     Dosage: UNK
  7. VITAMIN B6 [Suspect]
     Active Substance: PYRIDOXINE HYDROCHLORIDE
     Indication: Product used for unknown indication
     Dosage: UNK
  8. CYTOTEC [Concomitant]
     Active Substance: MISOPROSTOL
     Indication: Labour induction
     Dosage: UNK
     Dates: start: 20210717
  9. MAGNESIUM [Concomitant]
     Active Substance: MAGNESIUM
     Indication: Labour induction
     Dosage: UNK
     Dates: start: 20210717
  10. PITOCIN [Concomitant]
     Active Substance: OXYTOCIN
     Indication: Induced labour
     Dosage: UNK
     Dates: start: 20210718

REACTIONS (11)
  - Pre-eclampsia [Recovered/Resolved]
  - Hypertension [Recovered/Resolved]
  - Headache [Unknown]
  - Platelet count decreased [Unknown]
  - Coagulopathy [Unknown]
  - Disorientation [Unknown]
  - Premature delivery [Unknown]
  - Induced labour [Unknown]
  - Exposure during pregnancy [Unknown]
  - Live birth [Unknown]
  - Maternal exposure during breast feeding [Unknown]

NARRATIVE: CASE EVENT DATE: 20210717
